FAERS Safety Report 22622815 (Version 5)
Quarter: 2023Q4

REPORT INFORMATION
  Report Type: Spontaneous
  Country: JP (occurrence: JP)
  Receive Date: 20230621
  Receipt Date: 20231102
  Transmission Date: 20240109
  Serious: Yes (Hospitalization, Other)
  Sender: FDA-Public Use
  Company Number: JP-BRISTOL-MYERS SQUIBB COMPANY-2023-084533

PATIENT
  Age: 67 Year
  Sex: Female

DRUGS (6)
  1. YERVOY [Suspect]
     Active Substance: IPILIMUMAB
     Indication: Renal cell carcinoma
     Route: 041
     Dates: start: 20230329, end: 20230329
  2. YERVOY [Suspect]
     Active Substance: IPILIMUMAB
     Dosage: TOTAL NUMBER OF ADMINISTRATION: 2 DOSES
     Route: 041
     Dates: start: 20230420, end: 20230420
  3. OPDIVO [Suspect]
     Active Substance: NIVOLUMAB
     Indication: Renal cell carcinoma
     Route: 041
     Dates: start: 20230329, end: 20230329
  4. OPDIVO [Suspect]
     Active Substance: NIVOLUMAB
     Dosage: TOTAL NUMBER OF ADMINISTRATION: 2 DOSES
     Route: 041
     Dates: start: 20230420, end: 20230420
  5. OPDIVO [Suspect]
     Active Substance: NIVOLUMAB
     Dosage: OPDIVO MONOTHERAPY IN SEPTEMBER (1ST TIME)
     Route: 041
     Dates: start: 202309, end: 202309
  6. OPDIVO [Suspect]
     Active Substance: NIVOLUMAB
     Dosage: OPDIVO MONOTHERAPY (3RD TIME)
     Route: 041
     Dates: start: 20231026, end: 20231026

REACTIONS (7)
  - Liver disorder [Recovered/Resolved]
  - Hepatic enzyme increased [Recovered/Resolved]
  - Adrenocortical insufficiency acute [Recovered/Resolved]
  - Immune-mediated thyroiditis [Recovered/Resolved]
  - Inappropriate antidiuretic hormone secretion [Recovered/Resolved]
  - Malignant neoplasm progression [Unknown]
  - Hyponatraemia [Recovered/Resolved]

NARRATIVE: CASE EVENT DATE: 20230512
